FAERS Safety Report 6496309-0 (Version None)
Quarter: 2009Q4

REPORT INFORMATION
  Report Type: 
  Country: None (occurrence: None)
  Receive Date: 20091214
  Receipt Date: 20090225
  Transmission Date: 20100525
  Serious: No
  Sender: FDA-Public Use
  Company Number: US-ABBOTT-09P-163-0559707-00

PATIENT
  Sex: Female

DRUGS (2)
  1. VICODIN ES [Suspect]
     Indication: BACK PAIN
     Dosage: 7.5/750
     Route: 048
     Dates: start: 20080101, end: 20080101
  2. VICODIN ES [Suspect]
     Indication: ARTHRALGIA

REACTIONS (1)
  - PRURITUS [None]
